FAERS Safety Report 9005319 (Version 1)
Quarter: 2013Q1

REPORT INFORMATION
  Report Type: Spontaneous
  Country: US (occurrence: US)
  Receive Date: 20130108
  Receipt Date: 20130108
  Transmission Date: 20140127
  Serious: No
  Sender: FDA-Public Use
  Company Number: US-GLAXOSMITHKLINE-A0999590A

PATIENT
  Age: 29 Year
  Sex: Female
  Weight: 69.5 kg

DRUGS (2)
  1. POTIGA [Suspect]
     Indication: CONVULSION
     Route: 048
  2. UNKNOWN [Concomitant]

REACTIONS (1)
  - Hallucination, visual [Recovered/Resolved]
